FAERS Safety Report 13769919 (Version 1)
Quarter: 2017Q3

REPORT INFORMATION
  Report Type: Spontaneous
  Country: JP (occurrence: JP)
  Receive Date: 20170719
  Receipt Date: 20170719
  Transmission Date: 20171127
  Serious: Yes (Other)
  Sender: FDA-Public Use
  Company Number: JP-MYLANLABS-2017M1042964

PATIENT

DRUGS (2)
  1. MENDON CAPSULES 7.5MG [Suspect]
     Active Substance: CLORAZEPATE DIPOTASSIUM
     Dosage: UNK
     Route: 048
  2. MENDON CAPSULES 7.5MG [Suspect]
     Active Substance: CLORAZEPATE DIPOTASSIUM
     Indication: DIZZINESS
     Dosage: UNK
     Route: 048

REACTIONS (5)
  - Drug withdrawal syndrome [Unknown]
  - Surgery [None]
  - Off label use [Unknown]
  - Dizziness [None]
  - Unevaluable event [Unknown]
